FAERS Safety Report 9035379 (Version 1)
Quarter: 2013Q1

REPORT INFORMATION
  Report Type: Report from Study
  Country: US (occurrence: US)
  Receive Date: 20130129
  Receipt Date: 20130129
  Transmission Date: 20140127
  Serious: No
  Sender: FDA-Public Use
  Company Number: US-ABBOTT-12P-163-0899345-00

PATIENT
  Sex: Male
  Weight: 78.09 kg

DRUGS (9)
  1. HUMIRA 40 MG/0.8 ML PEN [Suspect]
     Indication: PSORIATIC ARTHROPATHY
     Dates: end: 201107
  2. HUMIRA 40 MG/0.8 ML PEN [Suspect]
     Indication: PSORIATIC ARTHROPATHY
  3. TACLONEX [Concomitant]
     Indication: PSORIASIS
  4. HUMULIN-R [Concomitant]
     Indication: TYPE 1 DIABETES MELLITUS
  5. LISINOPRIL [Concomitant]
     Indication: PROPHYLAXIS
  6. LISINOPRIL [Concomitant]
     Indication: LIVER DISORDER
  7. CRESTOR [Concomitant]
     Indication: PROPHYLAXIS
  8. CRESTOR [Concomitant]
     Indication: BLOOD CHOLESTEROL ABNORMAL
  9. HUMULIN N [Concomitant]
     Indication: DRUG INEFFECTIVE

REACTIONS (2)
  - Psoriasis [Not Recovered/Not Resolved]
  - Drug ineffective [Not Recovered/Not Resolved]
